FAERS Safety Report 11322665 (Version 8)
Quarter: 2016Q3

REPORT INFORMATION
  Report Type: Spontaneous
  Country: CA (occurrence: CA)
  Receive Date: 20150730
  Receipt Date: 20160701
  Transmission Date: 20161109
  Serious: Yes (Other)
  Sender: FDA-Public Use
  Company Number: CA-ROCHE-1614436

PATIENT
  Age: 53 Year
  Sex: Female

DRUGS (14)
  1. XOLAIR [Suspect]
     Active Substance: OMALIZUMAB
     Route: 058
     Dates: start: 20150119
  2. XOLAIR [Suspect]
     Active Substance: OMALIZUMAB
     Route: 058
     Dates: start: 20130614
  3. XOLAIR [Suspect]
     Active Substance: OMALIZUMAB
     Route: 058
     Dates: start: 20140514
  4. ADVAIR HFA [Concomitant]
     Active Substance: FLUTICASONE PROPIONATE\SALMETEROL XINAFOATE
  5. SPIRIVA [Concomitant]
     Active Substance: TIOTROPIUM BROMIDE MONOHYDRATE
  6. SINGULAIR [Concomitant]
     Active Substance: MONTELUKAST SODIUM
  7. XOLAIR [Suspect]
     Active Substance: OMALIZUMAB
     Route: 058
     Dates: start: 20140417
  8. XOLAIR [Suspect]
     Active Substance: OMALIZUMAB
     Indication: ASTHMA
     Route: 058
     Dates: start: 20130319
  9. XOLAIR [Suspect]
     Active Substance: OMALIZUMAB
     Route: 058
     Dates: start: 20140108
  10. XOLAIR [Suspect]
     Active Substance: OMALIZUMAB
     Route: 058
     Dates: start: 20150102
  11. XOLAIR [Suspect]
     Active Substance: OMALIZUMAB
     Route: 058
     Dates: start: 20160404
  12. VENTOLIN [Concomitant]
     Active Substance: ALBUTEROL SULFATE
  13. XOLAIR [Suspect]
     Active Substance: OMALIZUMAB
     Route: 058
     Dates: start: 20150914
  14. AVAMYS [Concomitant]
     Active Substance: FLUTICASONE FUROATE

REACTIONS (24)
  - Blood pressure decreased [Recovered/Resolved]
  - Pruritus [Unknown]
  - Heart rate increased [Recovered/Resolved]
  - Joint dislocation [Unknown]
  - Influenza [Unknown]
  - Injection site erythema [Recovered/Resolved]
  - Rash [Unknown]
  - Injection site oedema [Recovered/Resolved]
  - Hyposmia [Unknown]
  - Eczema [Unknown]
  - Asthma [Unknown]
  - Infection [Unknown]
  - Erythema [Unknown]
  - Bronchitis [Unknown]
  - Dyspnoea [Recovering/Resolving]
  - Fatigue [Unknown]
  - Fall [Unknown]
  - Pyrexia [Recovering/Resolving]
  - Nasal discharge discolouration [Recovering/Resolving]
  - Myalgia [Unknown]
  - Hypersensitivity [Unknown]
  - Asthenia [Unknown]
  - Injection site pruritus [Recovered/Resolved]
  - Injection site pain [Recovered/Resolved]

NARRATIVE: CASE EVENT DATE: 20130614
